FAERS Safety Report 16046246 (Version 1)
Quarter: 2019Q1

REPORT INFORMATION
  Report Type: Spontaneous
  Country: MX (occurrence: MX)
  Receive Date: 20190307
  Receipt Date: 20190307
  Transmission Date: 20190418
  Serious: Yes (Hospitalization, Other)
  Sender: FDA-Public Use
  Company Number: IND-MX-009507513-1903MEX001760

PATIENT
  Age: 23 Year
  Sex: Female

DRUGS (1)
  1. ESMERON [Suspect]
     Active Substance: ROCURONIUM BROMIDE
     Indication: ENDOTRACHEAL INTUBATION

REACTIONS (4)
  - Pulmonary oedema [Unknown]
  - Brain injury [Unknown]
  - Cardio-respiratory arrest [Unknown]
  - Anaphylactic shock [Unknown]
